FAERS Safety Report 9425756 (Version 1)
Quarter: 2013Q3

REPORT INFORMATION
  Report Type: Spontaneous
  Country: CL (occurrence: CL)
  Receive Date: 20130729
  Receipt Date: 20130729
  Transmission Date: 20140515
  Serious: Yes (Other)
  Sender: FDA-Public Use
  Company Number: CL-WATSON-2013-12960

PATIENT
  Age: 50 Year
  Sex: Male

DRUGS (4)
  1. CYCLOPHOSPHAMIDE (UNKNOWN) [Suspect]
     Indication: MYCOSIS FUNGOIDES
     Dosage: 2 CYCLES
     Route: 065
     Dates: start: 20091030
  2. DOXORUBICIN (UNKNOWN) [Suspect]
     Indication: MYCOSIS FUNGOIDES
     Dosage: 2 CYCLES
     Route: 065
     Dates: start: 20091030
  3. VINCRISTINE (UNKNOWN) [Suspect]
     Indication: MYCOSIS FUNGOIDES
     Dosage: 2 CYCLES
     Route: 065
     Dates: start: 20091030
  4. PREDNISOLONE (UNKNOWN) [Suspect]
     Indication: MYCOSIS FUNGOIDES
     Dosage: 2 CYCLES
     Route: 065
     Dates: start: 20091030

REACTIONS (1)
  - Febrile neutropenia [Recovered/Resolved]
